FAERS Safety Report 7703515-3 (Version None)
Quarter: 2011Q3

REPORT INFORMATION
  Report Type: 
  Country: None (occurrence: None)
  Receive Date: 20110823
  Receipt Date: 20110809
  Transmission Date: 20111222
  Serious: No
  Sender: FDA-Public Use
  Company Number: US-B.I. PHARMACEUTICALS,INC./RIDGEFIELD-2011-BP-11296BP

PATIENT
  Sex: Female

DRUGS (2)
  1. MICARDIS HCT [Suspect]
     Indication: HYPERTENSION
     Route: 048
     Dates: start: 20080101, end: 20110301
  2. SYNTHROID [Concomitant]
     Indication: HYPOTHYROIDISM
     Route: 048

REACTIONS (7)
  - BACK PAIN [None]
  - PAIN [None]
  - ARTHRALGIA [None]
  - ANTINUCLEAR ANTIBODY POSITIVE [None]
  - MYALGIA [None]
  - BREAST ENLARGEMENT [None]
  - SYSTEMIC LUPUS ERYTHEMATOSUS [None]
